FAERS Safety Report 6341109-5 (Version None)
Quarter: 2009Q3

REPORT INFORMATION
  Report Type: 
  Country: None (occurrence: None)
  Receive Date: 20090904
  Receipt Date: 20090903
  Transmission Date: 20100115
  Serious: Yes (Other)
  Sender: FDA-Public Use
  Company Number: A0805865A

PATIENT
  Age: 57 Year
  Sex: Male

DRUGS (1)
  1. ALLI [Suspect]
     Indication: WEIGHT LOSS DIET
     Route: 048
     Dates: start: 20090701

REACTIONS (4)
  - DELUSION OF GRANDEUR [None]
  - INSOMNIA [None]
  - LOGORRHOEA [None]
  - MANIA [None]
